FAERS Safety Report 8192839-4 (Version None)
Quarter: 2012Q1

REPORT INFORMATION
  Report Type: 
  Country: None (occurrence: None)
  Receive Date: 20120308
  Receipt Date: 20120305
  Transmission Date: 20120608
  Serious: No
  Sender: FDA-Public Use
  Company Number: US-PFIZER INC-2012045302

PATIENT
  Sex: Male

DRUGS (13)
  1. RIBAVIRIN [Suspect]
     Indication: HEPATITIS C
     Dosage: 1200 MG, 1X/DAY
     Route: 048
     Dates: start: 20110919
  2. PREGABALIN [Concomitant]
  3. BENICAR [Concomitant]
     Indication: PRODUCT USED FOR UNKNOWN INDICATION
     Route: 065
  4. PEGINTERFERON ALFA-2A [Suspect]
     Indication: HEPATITIS C
     Dosage: 180 UG, WEEKLY
     Route: 065
     Dates: start: 20110919
  5. AMLODIPINE BESYLATE AND VALSARTAN [Suspect]
     Dosage: UNK
  6. INSULIN GLARGINE [Suspect]
     Indication: DIABETES MELLITUS
     Dosage: 10 DF, 1X/DAY
     Route: 065
  7. IBUPROFEN [Concomitant]
     Route: 065
  8. GLIPIZIDE [Suspect]
     Indication: PRODUCT USED FOR UNKNOWN INDICATION
     Route: 065
  9. AMLODIPINE BESYLATE AND VALSARTAN [Suspect]
     Indication: HYPERTENSION
     Dosage: 1 DF, 1X/DAY
     Route: 048
  10. TELAPREVIR [Suspect]
     Indication: HEPATITIS C
     Dosage: 750 MG, 3X/DAY
     Route: 048
     Dates: start: 20110919
  11. GLUCOPHAGE [Suspect]
     Indication: PRODUCT USED FOR UNKNOWN INDICATION
     Route: 065
  12. ASPIRIN [Concomitant]
     Indication: PRODUCT USED FOR UNKNOWN INDICATION
     Route: 065
  13. VITAMIN B COMPLEX CAP [Concomitant]
     Indication: PRODUCT USED FOR UNKNOWN INDICATION
     Route: 065

REACTIONS (9)
  - INAPPROPRIATE SCHEDULE OF DRUG ADMINISTRATION [None]
  - NAUSEA [None]
  - DRUG DOSE OMISSION [None]
  - VOMITING [None]
  - BLOOD GLUCOSE DECREASED [None]
  - PAIN [None]
  - CHILLS [None]
  - PYREXIA [None]
  - DECREASED APPETITE [None]
